FAERS Safety Report 23098839 (Version 1)
Quarter: 2023Q4

REPORT INFORMATION
  Report Type: Spontaneous
  Country: GB (occurrence: GB)
  Receive Date: 20231024
  Receipt Date: 20231024
  Transmission Date: 20240110
  Serious: Yes (Other)
  Sender: FDA-Public Use
  Company Number: None

PATIENT
  Age: 58 Year
  Sex: Female
  Weight: 65 kg

DRUGS (6)
  1. ATORVASTATIN [Suspect]
     Active Substance: ATORVASTATIN
     Indication: Low density lipoprotein
     Dosage: 5 MG, QD
     Route: 065
     Dates: start: 20231011, end: 20231015
  2. LANSOPRAZOLE [Concomitant]
     Active Substance: LANSOPRAZOLE
     Indication: Serum sickness
     Dosage: UNK
     Route: 065
     Dates: start: 20221101
  3. NAPROXEN [Concomitant]
     Active Substance: NAPROXEN
     Indication: Pain
     Dosage: UNK
     Route: 065
     Dates: start: 20220901
  4. SERTRALINE [Concomitant]
     Active Substance: SERTRALINE HYDROCHLORIDE
     Indication: Tinnitus
     Route: 065
     Dates: start: 20151221
  5. Solpadeine [Concomitant]
     Indication: Pain
     Route: 065
     Dates: start: 20151027
  6. DICLOFENAC DIETHYLAMINE [Concomitant]
     Active Substance: DICLOFENAC DIETHYLAMINE
     Indication: Pain
     Route: 065
     Dates: start: 20221101

REACTIONS (5)
  - Fluid retention [Recovered/Resolved]
  - Urinary retention [Unknown]
  - Feeling abnormal [Unknown]
  - Palpitations [Unknown]
  - Nausea [Unknown]

NARRATIVE: CASE EVENT DATE: 20231013
